FAERS Safety Report 16425495 (Version 2)
Quarter: 2019Q3

REPORT INFORMATION
  Report Type: Spontaneous
  Country: US (occurrence: US)
  Receive Date: 20190613
  Receipt Date: 20190702
  Transmission Date: 20191004
  Serious: No
  Sender: FDA-Public Use
  Company Number: US-PFIZER INC-2019252264

PATIENT
  Age: 45 Year
  Sex: Male

DRUGS (1)
  1. METHOTREXATE. [Suspect]
     Active Substance: METHOTREXATE
     Indication: RHEUMATOID ARTHRITIS
     Dosage: 2.5 MG, UNK
     Route: 048

REACTIONS (4)
  - Liver function test increased [Recovered/Resolved]
  - Drug ineffective [Recovered/Resolved]
  - Abdominal discomfort [Recovered/Resolved]
  - Drug hypersensitivity [Unknown]
